FAERS Safety Report 24647861 (Version 2)
Quarter: 2025Q1

REPORT INFORMATION
  Report Type: Report from Study
  Country: US (occurrence: US)
  Receive Date: 20241121
  Receipt Date: 20250128
  Transmission Date: 20250409
  Serious: Yes (Hospitalization, Other)
  Sender: BAYER HEALTHCARE PHARMACEUTICALS INC.
  Company Number: US-BAYER-2024A160989

PATIENT
  Age: 74 Year
  Sex: Male

DRUGS (28)
  1. NUBEQA [Suspect]
     Active Substance: DAROLUTAMIDE
     Indication: Follicular lymphoma
     Dosage: 600 MG, BID
     Route: 048
     Dates: end: 202410
  2. NUBEQA [Suspect]
     Active Substance: DAROLUTAMIDE
     Indication: Prostate cancer
  3. RITUXAN [Suspect]
     Active Substance: RITUXIMAB
  4. ELIQUIS [Concomitant]
     Active Substance: APIXABAN
  5. LYNPARZA [Concomitant]
     Active Substance: OLAPARIB
  6. METOPROLOL SUCCINATE [Concomitant]
     Active Substance: METOPROLOL SUCCINATE
  7. ONDANSETRON [Concomitant]
     Active Substance: ONDANSETRON
  8. CLOPIDOGREL BISULFATE [Concomitant]
     Active Substance: CLOPIDOGREL BISULFATE
  9. GABAPENTIN [Concomitant]
     Active Substance: GABAPENTIN
  10. LIDOCAINE [Concomitant]
     Active Substance: LIDOCAINE
     Indication: Pain in extremity
  11. PREDNISONE [Concomitant]
     Active Substance: PREDNISONE
  12. AMITRIPTYLINE HYDROCHLORIDE [Concomitant]
     Active Substance: AMITRIPTYLINE HYDROCHLORIDE
  13. ATORVASTATIN [Concomitant]
     Active Substance: ATORVASTATIN
  14. ATORVASTATIN [Concomitant]
     Active Substance: ATORVASTATIN
  15. COENZYME Q10 [Concomitant]
     Active Substance: DIETARY SUPPLEMENT\UBIDECARENONE
  16. DILTIAZEM HYDROCHLORIDE [Concomitant]
     Active Substance: DILTIAZEM HYDROCHLORIDE
  17. HERBALS [Concomitant]
     Active Substance: HERBALS
  18. HYDROCODONE [Concomitant]
     Active Substance: HYDROCODONE
  19. LUPRON DEPOT [Concomitant]
     Active Substance: LEUPROLIDE ACETATE
  20. METAMUCIL [Concomitant]
     Active Substance: PLANTAGO SEED
  21. METFORMIN [Concomitant]
     Active Substance: METFORMIN HYDROCHLORIDE
  22. METHOCARBAMOL [Concomitant]
     Active Substance: METHOCARBAMOL
  23. MODAFINIL [Concomitant]
     Active Substance: MODAFINIL
  24. Nervive nerve relief [Concomitant]
  25. POTASSIUM [Concomitant]
     Active Substance: POTASSIUM
  26. HERBALS\TURMERIC [Concomitant]
     Active Substance: HERBALS\TURMERIC
  27. VITAMIN D NOS [Concomitant]
     Active Substance: CHOLECALCIFEROL\ERGOCALCIFEROL
  28. FUROSEMIDE [Concomitant]
     Active Substance: FUROSEMIDE

REACTIONS (24)
  - Dyspnoea [None]
  - Dysstasia [None]
  - Blindness transient [Recovered/Resolved]
  - Visual impairment [Recovered/Resolved]
  - Neuropathy peripheral [None]
  - Prostatic specific antigen increased [None]
  - Arterial stenosis [None]
  - Deafness transitory [Recovered/Resolved]
  - Coronary artery disease [Recovered/Resolved]
  - Platelet disorder [None]
  - Feeling abnormal [Recovered/Resolved]
  - Bone pain [None]
  - Gait disturbance [None]
  - Vertigo [None]
  - Glucose tolerance impaired [None]
  - Abdominal distension [None]
  - Flatulence [None]
  - Dry mouth [None]
  - Alopecia [Recovering/Resolving]
  - Drug hypersensitivity [None]
  - Herpes zoster [Recovered/Resolved]
  - Arthralgia [None]
  - Pain in extremity [None]
  - Adverse event [Recovered/Resolved]

NARRATIVE: CASE EVENT DATE: 20241001
